FAERS Safety Report 17757205 (Version 1)
Quarter: 2020Q2

REPORT INFORMATION
  Report Type: Spontaneous
  Country: JP (occurrence: JP)
  Receive Date: 20200507
  Receipt Date: 20200507
  Transmission Date: 20200714
  Serious: Yes (Hospitalization, Other)
  Sender: FDA-Public Use
  Company Number: JP-APOTEX-2020AP010577

PATIENT
  Age: 8 Decade
  Sex: Male

DRUGS (2)
  1. PAXIL [Suspect]
     Active Substance: PAROXETINE HYDROCHLORIDE
     Indication: DEPRESSION
     Dosage: UNK
     Route: 048
  2. LORAZEPAM. [Suspect]
     Active Substance: LORAZEPAM
     Indication: DEPRESSION
     Dosage: UNK
     Route: 048

REACTIONS (17)
  - Urinary tract discomfort [Unknown]
  - Headache [Recovering/Resolving]
  - Delirium [Recovering/Resolving]
  - Altered state of consciousness [Unknown]
  - Depressed mood [Recovered/Resolved]
  - Bradyphrenia [Recovering/Resolving]
  - Urinary tract infection [Unknown]
  - Suicide attempt [Unknown]
  - Burns second degree [Unknown]
  - Dizziness [Recovering/Resolving]
  - Burns third degree [Unknown]
  - Dysuria [Unknown]
  - Suicidal ideation [Recovered/Resolved]
  - Depressed level of consciousness [Recovering/Resolving]
  - Memory impairment [Recovering/Resolving]
  - Neurogenic bladder [Unknown]
  - Disturbance in attention [Recovering/Resolving]
